FAERS Safety Report 10220660 (Version 3)
Quarter: 2014Q3

REPORT INFORMATION
  Report Type: Report from Study
  Country: JP (occurrence: JP)
  Receive Date: 20140606
  Receipt Date: 20140707
  Transmission Date: 20150326
  Serious: Yes (Hospitalization)
  Sender: FDA-Public Use
  Company Number: JP-ROCHE-1413356

PATIENT
  Age: 57 Year
  Sex: Female
  Weight: 79.9 kg

DRUGS (7)
  1. BLOPRESS [Concomitant]
     Active Substance: CANDESARTAN CILEXETIL
     Indication: HYPERTENSION
     Dosage: THE BEGINNING OF DOSAGE DAY: BEFORE IT REGISTERS
     Route: 048
  2. TRASTUZUMAB EMTANSINE [Suspect]
     Active Substance: ADO-TRASTUZUMAB EMTANSINE
     Indication: BREAST CANCER METASTATIC
     Route: 042
     Dates: start: 20140312, end: 20140423
  3. TSUMURA GOSHAJINKIGAN [Concomitant]
     Active Substance: HERBALS
     Indication: NEUROPATHY PERIPHERAL
     Dosage: THE BEGINNING OF DOSAGE DAY: BEFORE IT REGISTERS
     Route: 048
  4. LOBU [Concomitant]
     Active Substance: LOBUCAVIR
     Indication: SKIN DISORDER
     Dosage: THE BEGINNING OF DOSAGE DAY: BEFORE IT REGISTERS
     Route: 048
  5. CYTOTEC [Concomitant]
     Active Substance: MISOPROSTOL
     Indication: PROPHYLAXIS AGAINST GASTROINTESTINAL ULCER
     Dosage: THE BEGINNING OF DOSAGE DAY: BEFORE IT REGISTERS
     Route: 048
  6. URSODEOXYCHOLIC ACID [Concomitant]
     Active Substance: URSODIOL
     Indication: AUTOIMMUNE HEPATITIS
     Dosage: THE BEGINNING OF DOSAGE DAY: BEFORE IT REGISTERS
     Route: 048
  7. NIFEDIPINE CR [Concomitant]
     Indication: HYPERTENSION
     Dosage: THE BEGINNING OF DOSAGE DAY: BEFORE IT REGISTERS
     Route: 048

REACTIONS (1)
  - Pneumonia [Recovering/Resolving]

NARRATIVE: CASE EVENT DATE: 20140514
